FAERS Safety Report 24074792 (Version 1)
Quarter: 2024Q3

REPORT INFORMATION
  Report Type: Spontaneous
  Country: US (occurrence: None)
  Receive Date: 20240710
  Receipt Date: 20240710
  Transmission Date: 20241016
  Serious: Yes (Hospitalization)
  Sender: Public
  Company Number: None

PATIENT
  Age: 73 Year
  Sex: Female
  Weight: 57.6 kg

DRUGS (5)
  1. PROLIA [Suspect]
     Active Substance: DENOSUMAB
     Indication: Osteoporosis
     Dosage: OTHER QUANTITY : 1 INJECTION(S);?OTHER FREQUENCY : 6 MONTHS;?OTHER ROUTE : INJECTION INTO THE ABDOME
     Route: 050
  2. LEVOTHYROXINE [Concomitant]
     Active Substance: LEVOTHYROXINE\LEVOTHYROXINE SODIUM
  3. CALCIUM W/VITAMIN D-3 [Concomitant]
  4. PROBIOTIC W/PREBIOTIC [Concomitant]
  5. VITAMINS [Concomitant]
     Active Substance: VITAMINS

REACTIONS (9)
  - Abdominal pain upper [None]
  - Abdominal distension [None]
  - Musculoskeletal stiffness [None]
  - Pain in extremity [None]
  - Peripheral swelling [None]
  - Loss of personal independence in daily activities [None]
  - Bursitis [None]
  - Tendonitis [None]
  - Arthritis [None]

NARRATIVE: CASE EVENT DATE: 20240701
